FAERS Safety Report 7402018-3 (Version None)
Quarter: 2011Q2

REPORT INFORMATION
  Report Type: 
  Country: None (occurrence: None)
  Receive Date: 20110408
  Receipt Date: 20110329
  Transmission Date: 20111010
  Serious: Yes (Other)
  Sender: FDA-Public Use
  Company Number: US-BAYER-2011-007882

PATIENT
  Age: 38 Year
  Sex: Female

DRUGS (1)
  1. MIRENA [Suspect]
     Indication: CONTRACEPTION
     Dosage: DAILY DOSE 20 ?G/D
     Dates: start: 20110118, end: 20110118

REACTIONS (8)
  - SYNCOPE [None]
  - PALLOR [None]
  - BLOOD PRESSURE INCREASED [None]
  - DISCOMFORT [None]
  - DIZZINESS [None]
  - ABDOMINAL PAIN [None]
  - ANXIETY [None]
  - HYPERHIDROSIS [None]
